FAERS Safety Report 8036656-4 (Version None)
Quarter: 2012Q1

REPORT INFORMATION
  Report Type: 
  Country: None (occurrence: None)
  Receive Date: 20120111
  Receipt Date: 20120109
  Transmission Date: 20120608
  Serious: Yes (Death)
  Sender: FDA-Public Use
  Company Number: US-ROCHE-GNE319640

PATIENT
  Sex: Female

DRUGS (3)
  1. XOLAIR [Suspect]
     Indication: ASTHMA
  2. XOLAIR [Suspect]
     Indication: FOOD ALLERGY
     Dosage: 150 MG, 1/MONTH, LAST DOSE: 22/AUG/2011
     Route: 058
     Dates: start: 20030925, end: 20110801
  3. XOPENEX HFA [Concomitant]
     Dates: start: 20080401

REACTIONS (1)
  - PANCREATIC CARCINOMA [None]
